FAERS Safety Report 9436701 (Version 1)
Quarter: 2013Q3

REPORT INFORMATION
  Report Type: Report from Study
  Country: ES (occurrence: ES)
  Receive Date: 20130802
  Receipt Date: 20130802
  Transmission Date: 20140515
  Serious: Yes (Hospitalization, Disabling)
  Sender: FDA-Public Use
  Company Number: ES-BAYER-2013-078450

PATIENT
  Sex: Male

DRUGS (1)
  1. REGORAFENIB [Suspect]
     Indication: GASTROINTESTINAL STROMAL TUMOUR
     Dosage: 160 MG, TOTAL DAILY DOSE
     Route: 048

REACTIONS (1)
  - Extraocular muscle disorder [Recovering/Resolving]
